FAERS Safety Report 13125699 (Version 1)
Quarter: 2017Q1

REPORT INFORMATION
  Report Type: Not Available
  Country: US (occurrence: US)
  Receive Date: 20170118
  Receipt Date: 20170118
  Transmission Date: 20170428
  Serious: Yes (Death)
  Sender: FDA-Public Use
  Company Number: US-IDTAUSTRALIA-2017-US-000408

PATIENT
  Age: 46 Year
  Sex: Male

DRUGS (1)
  1. DEXAMETHASONE (NON-SPECIFIC) [Suspect]
     Active Substance: DEXAMETHASONE
     Dosage: 4 MG EVERY 6 HOURS
     Route: 065

REACTIONS (1)
  - Tumour lysis syndrome [Fatal]
